FAERS Safety Report 20812500 (Version 1)
Quarter: 2022Q2

REPORT INFORMATION
  Report Type: Spontaneous
  Country: FR (occurrence: FR)
  Receive Date: 20220511
  Receipt Date: 20220511
  Transmission Date: 20220721
  Serious: Yes (Hospitalization)
  Sender: FDA-Public Use
  Company Number: None

PATIENT
  Age: 73 Year
  Sex: Female
  Weight: 84 kg

DRUGS (6)
  1. QUETIAPINE [Suspect]
     Active Substance: QUETIAPINE
     Indication: Bipolar disorder
     Dosage: UNIT DOSE: 50 MG, FREQUENCY TIME : 1 DAY, THERAPY START DATE : NASK
     Route: 048
     Dates: end: 20220302
  2. TERALITHE [Suspect]
     Active Substance: LITHIUM CARBONATE
     Indication: Bipolar disorder
     Dosage: 750 MILLIGRAM DAILY; 1 TABLET MORNING, 2 TABLETS EVENING, THERAPY START DATE : NASK, SCORED TABLET
     Route: 048
     Dates: end: 20220302
  3. PAROXETINE HYDROCHLORIDE [Suspect]
     Active Substance: PAROXETINE HYDROCHLORIDE
     Indication: Bipolar disorder
     Dosage: UNIT DOSE: 20 MG,THERAPY START DATE : NASK, FREQUENCY TIME : 1 DAY
     Route: 048
     Dates: end: 20220302
  4. DOLIPRANE [Concomitant]
     Active Substance: ACETAMINOPHEN
  5. RAMIPRIL [Concomitant]
     Active Substance: RAMIPRIL
  6. HYDROCHLOROTHIAZIDE [Concomitant]
     Active Substance: HYDROCHLOROTHIAZIDE

REACTIONS (3)
  - Extrapyramidal disorder [Recovered/Resolved]
  - Confusional state [Recovered/Resolved]
  - Antipsychotic drug level increased [Recovered/Resolved]

NARRATIVE: CASE EVENT DATE: 20220201
